FAERS Safety Report 8262935-1 (Version None)
Quarter: 2012Q2

REPORT INFORMATION
  Report Type: 
  Country: None (occurrence: None)
  Receive Date: 20120405
  Receipt Date: 20120402
  Transmission Date: 20120825
  Serious: Yes (Other)
  Sender: FDA-Public Use
  Company Number: IT-GLAXOSMITHKLINE-B0793500A

PATIENT
  Sex: Female

DRUGS (3)
  1. VALACYCLOVIR HYDROCHLORIDE [Suspect]
     Indication: PRODUCT USED FOR UNKNOWN INDICATION
     Route: 065
     Dates: start: 20110920
  2. BACTRIM [Concomitant]
  3. DIFLUCAN [Concomitant]

REACTIONS (3)
  - LARYNGEAL OEDEMA [None]
  - TONGUE OEDEMA [None]
  - RASH GENERALISED [None]
